FAERS Safety Report 16909227 (Version 1)
Quarter: 2019Q4

REPORT INFORMATION
  Report Type: Spontaneous
  Country: US (occurrence: US)
  Receive Date: 20191011
  Receipt Date: 20191011
  Transmission Date: 20200122
  Serious: Yes (Hospitalization)
  Sender: FDA-Public Use
  Company Number: US-PFIZER INC-2019070258

PATIENT
  Age: 20 Year
  Sex: Female
  Weight: 76.66 kg

DRUGS (4)
  1. VFEND [Suspect]
     Active Substance: VORICONAZOLE
     Indication: HISTOPLASMOSIS
     Dosage: 40 MG, UNK
  2. VFEND [Suspect]
     Active Substance: VORICONAZOLE
     Indication: PNEUMONIA
     Dosage: 400 MG/10 ML , 2X/DAY
     Route: 048
  3. VFEND [Suspect]
     Active Substance: VORICONAZOLE
     Indication: ASPERGILLUS INFECTION
     Dosage: (200 MG) 5ML, 2X/DAY
     Route: 048
  4. VFEND [Suspect]
     Active Substance: VORICONAZOLE
     Dosage: UNK
     Route: 048
     Dates: start: 201902

REACTIONS (4)
  - Condition aggravated [Unknown]
  - Diabetic ketoacidosis [Unknown]
  - Product dispensing error [Unknown]
  - Blood glucose increased [Unknown]
